FAERS Safety Report 16369916 (Version 1)
Quarter: 2019Q2

REPORT INFORMATION
  Report Type: Spontaneous
  Country: CA (occurrence: CA)
  Receive Date: 20190530
  Receipt Date: 20190530
  Transmission Date: 20190711
  Serious: Yes (Hospitalization)
  Sender: FDA-Public Use
  Company Number: CA-TEVA-2019-CA-1056775

PATIENT
  Age: 19 Year
  Sex: Male

DRUGS (12)
  1. ACETAMINOPHEN. [Concomitant]
     Active Substance: ACETAMINOPHEN
  2. DIMENHYDRINATE. [Concomitant]
     Active Substance: DIMENHYDRINATE
  3. ERGOCALCIFEROL. [Concomitant]
     Active Substance: ERGOCALCIFEROL
  4. PREDNISONE. [Suspect]
     Active Substance: PREDNISONE
     Indication: COLITIS ULCERATIVE
     Route: 065
  5. MULTIVITAMINE(S) [Concomitant]
     Active Substance: VITAMINS
  6. THIAMINE. [Concomitant]
     Active Substance: THIAMINE
  7. MESALAZINE [Suspect]
     Active Substance: MESALAMINE
     Indication: COLITIS ULCERATIVE
     Route: 061
  8. INFLECTRA [Concomitant]
     Active Substance: INFLIXIMAB-DYYB
  9. SALOFALK /00000301/ [Suspect]
     Active Substance: AMINOSALICYLIC ACID
     Indication: COLITIS ULCERATIVE
     Route: 054
  10. CALCIUM CARBONATE. [Concomitant]
     Active Substance: CALCIUM CARBONATE
  11. IRON SUCROSE [Concomitant]
     Active Substance: IRON SUCROSE
  12. TUBERCULIN PPD (MANTOUX) [Concomitant]
     Dosage: DOSAGE FORM: LIQUID INTRADERMAL

REACTIONS (5)
  - Diarrhoea haemorrhagic [Unknown]
  - Hypophagia [Unknown]
  - Decreased appetite [Unknown]
  - Abdominal pain [Unknown]
  - Treatment failure [Unknown]
